FAERS Safety Report 15860081 (Version 1)
Quarter: 2019Q1

REPORT INFORMATION
  Report Type: Spontaneous
  Country: US (occurrence: US)
  Receive Date: 20190123
  Receipt Date: 20190123
  Transmission Date: 20190417
  Serious: Yes (Other)
  Sender: FDA-Public Use
  Company Number: US-TEVA-2019-US-999528

PATIENT
  Sex: Female

DRUGS (1)
  1. METHYLPREDNISOLONE TABLET ACTAVIS [Suspect]
     Active Substance: METHYLPREDNISOLONE
     Indication: SWELLING
     Route: 065
     Dates: start: 20171228

REACTIONS (2)
  - Eye haemorrhage [Unknown]
  - Hypertension [Unknown]

NARRATIVE: CASE EVENT DATE: 20171228
